FAERS Safety Report 13102440 (Version 1)
Quarter: 2017Q1

REPORT INFORMATION
  Report Type: Spontaneous
  Country: US (occurrence: US)
  Receive Date: 20170110
  Receipt Date: 20170110
  Transmission Date: 20170428
  Serious: No
  Sender: FDA-Public Use
  Company Number: US-TARO-2015TAR01170

PATIENT
  Age: 75 Year
  Sex: Female

DRUGS (1)
  1. TOPICORT [Suspect]
     Active Substance: DESOXIMETASONE
     Indication: ECZEMA
     Route: 061

REACTIONS (1)
  - Drug effect delayed [Recovered/Resolved]
